FAERS Safety Report 11582547 (Version 1)
Quarter: 2015Q4

REPORT INFORMATION
  Report Type: Spontaneous
  Country: US (occurrence: US)
  Receive Date: 20151001
  Receipt Date: 20151001
  Transmission Date: 20160304
  Serious: No
  Sender: FDA-Public Use
  Company Number: US-ROCHE-654670

PATIENT
  Age: 51 Year
  Sex: Female
  Weight: 82.1 kg

DRUGS (5)
  1. RIBAVIRIN. [Suspect]
     Active Substance: RIBAVIRIN
     Indication: HEPATITIS C
     Route: 065
  2. PEGASYS [Suspect]
     Active Substance: PEGINTERFERON ALFA-2A
     Indication: HEPATITIS C
     Dosage: FORM: PRE-FILLED SYRINGE, PATIENT IN WEEK 45 OF TREATMENT
     Route: 065
  3. MEGESTROL ACETATE. [Concomitant]
     Active Substance: MEGESTROL ACETATE
     Route: 065
  4. ESTROGEN [Concomitant]
     Active Substance: ESTRONE\SUS SCROFA OVARY
     Route: 065
  5. RIBAVIRIN. [Suspect]
     Active Substance: RIBAVIRIN
     Dosage: DIVIDED DOSES, PATIENT IN WEEK 45 OF TREATMENT
     Route: 065

REACTIONS (17)
  - Injection site bruising [Unknown]
  - Haemorrhagic diathesis [Unknown]
  - Red blood cell count decreased [Recovering/Resolving]
  - Arthralgia [Unknown]
  - Nausea [Unknown]
  - Decreased appetite [Recovering/Resolving]
  - Bone pain [Unknown]
  - Vaginal discharge [Unknown]
  - Eructation [Recovering/Resolving]
  - Vulvovaginal pruritus [Unknown]
  - Insomnia [Not Recovered/Not Resolved]
  - Injection site haemorrhage [Unknown]
  - Headache [Unknown]
  - Weight decreased [Not Recovered/Not Resolved]
  - Fungal infection [Unknown]
  - Anaemia [Not Recovered/Not Resolved]
  - Allergic respiratory symptom [Unknown]

NARRATIVE: CASE EVENT DATE: 20090902
